FAERS Safety Report 14838161 (Version 3)
Quarter: 2018Q2

REPORT INFORMATION
  Report Type: Spontaneous
  Country: US (occurrence: US)
  Receive Date: 20180502
  Receipt Date: 20180605
  Transmission Date: 20180711
  Serious: No
  Sender: FDA-Public Use
  Company Number: US-PFIZER INC-2018175046

PATIENT
  Age: 65 Year
  Sex: Male
  Weight: 70.31 kg

DRUGS (1)
  1. TESTOSTERONE CIPIONATE [Suspect]
     Active Substance: TESTOSTERONE
     Indication: SECONDARY HYPOGONADISM
     Dosage: 0.5 ML EVERY 14 DAYS
     Route: 030
     Dates: start: 201706

REACTIONS (6)
  - Injection site haemorrhage [Unknown]
  - Injection site swelling [Unknown]
  - Injection site bruising [Unknown]
  - Poor quality drug administered [Unknown]
  - Product physical consistency issue [Unknown]
  - Injection site pain [Unknown]

NARRATIVE: CASE EVENT DATE: 201804
